FAERS Safety Report 7821957-2 (Version None)
Quarter: 2011Q4

REPORT INFORMATION
  Report Type: 
  Country: None (occurrence: None)
  Receive Date: 20111018
  Receipt Date: 20110525
  Transmission Date: 20120403
  Serious: No
  Sender: FDA-Public Use
  Company Number: US-ASTRAZENECA-2011SE26818

PATIENT
  Sex: Female

DRUGS (7)
  1. ALBUTEROL [Concomitant]
     Indication: WHEEZING
     Dosage: TWO PUFFS QID
  2. XOPENEX [Concomitant]
     Dosage: 0.63 MG/3 ML TWO VIALS ONCE
     Dates: end: 20110218
  3. ZYRTEC [Concomitant]
     Indication: HYPERSENSITIVITY
  4. SYMBICORT [Suspect]
     Dosage: 160/4.5 MCG 2 PUFFS BID
     Route: 055
  5. ALBUTEROL [Concomitant]
     Indication: COUGH
     Dosage: TWO PUFFS QID
  6. TESSALON [Concomitant]
     Dosage: 200 MG 1 TID AS REQUIRED
     Dates: end: 20110226
  7. BIAXIN [Concomitant]
     Indication: INFECTION
     Dates: end: 20110226

REACTIONS (2)
  - DRUG DOSE OMISSION [None]
  - ASTHMA [None]
